FAERS Safety Report 6021661-X (Version None)
Quarter: 2008Q4

REPORT INFORMATION
  Report Type: 
  Country: None (occurrence: None)
  Receive Date: 20081222
  Receipt Date: 20081211
  Transmission Date: 20090506
  Serious: Yes (Other)
  Sender: FDA-Public Use
  Company Number: PAR_02406_2008

PATIENT
  Sex: Female
  Weight: 62 kg

DRUGS (5)
  1. IBUPROFEN [Suspect]
     Indication: ANALGESIA
     Dosage: (300 MG TO 600 MG ORAL)
     Route: 048
     Dates: start: 20040101, end: 20080101
  2. METHYLPREDNISOLONE 16MG TAB [Suspect]
     Indication: ARTHRITIS
     Dosage: (20 MG ORAL), (12 MG ORAL)
     Route: 048
     Dates: start: 20080115, end: 20080101
  3. METHYLPREDNISOLONE 16MG TAB [Suspect]
     Indication: ARTHRITIS
     Dosage: (20 MG ORAL), (12 MG ORAL)
     Route: 048
     Dates: start: 20080101
  4. BISOPROLOL FUMARATE [Concomitant]
  5. DICLOFENAC SODIUM [Concomitant]

REACTIONS (4)
  - ARTHRITIS [None]
  - HEPATIC STEATOSIS [None]
  - SELF-MEDICATION [None]
  - WEIGHT DECREASED [None]
